FAERS Safety Report 18572494 (Version 1)
Quarter: 2020Q4

REPORT INFORMATION
  Report Type: Spontaneous
  Country: CN (occurrence: CN)
  Receive Date: 20201202
  Receipt Date: 20201202
  Transmission Date: 20210114
  Serious: Yes (Death, Other)
  Sender: FDA-Public Use
  Company Number: CN-ASTRAZENECA-2020SF59389

PATIENT
  Age: 30316 Day
  Sex: Male
  Weight: 45 kg

DRUGS (2)
  1. PULMICORT RESPULES [Suspect]
     Active Substance: BUDESONIDE
     Indication: INFLAMMATION
     Route: 055
     Dates: start: 20201026
  2. PULMICORT RESPULES [Suspect]
     Active Substance: BUDESONIDE
     Indication: INFLAMMATION
     Route: 055
     Dates: start: 20201015, end: 20201021

REACTIONS (6)
  - Lung disorder [Unknown]
  - White blood cell count increased [Recovering/Resolving]
  - Achromobacter infection [Unknown]
  - C-reactive protein increased [Unknown]
  - Productive cough [Unknown]
  - Respiratory failure [Fatal]

NARRATIVE: CASE EVENT DATE: 20201017
